FAERS Safety Report 22354982 (Version 1)
Quarter: 2023Q2

REPORT INFORMATION
  Report Type: Spontaneous
  Country: IT (occurrence: IT)
  Receive Date: 20230523
  Receipt Date: 20230523
  Transmission Date: 20230721
  Serious: Yes (Other)
  Sender: FDA-Public Use
  Company Number: IT-ALKEM LABORATORIES LIMITED-IT-ALKEM-2023-05431

PATIENT
  Sex: Female

DRUGS (1)
  1. SIROLIMUS [Suspect]
     Active Substance: SIROLIMUS
     Indication: Lymphatic malformation
     Dosage: 0.8 MILLIGRAM/SQ. METER, BID (TARGET BLOOD CONCENTRATION 10-15 NG/ML)
     Route: 065

REACTIONS (2)
  - Peripheral nerve palsy [Unknown]
  - Disease recurrence [Unknown]
